FAERS Safety Report 16370029 (Version 1)
Quarter: 2019Q2

REPORT INFORMATION
  Report Type: Spontaneous
  Country: US (occurrence: US)
  Receive Date: 20190530
  Receipt Date: 20190530
  Transmission Date: 20190711
  Serious: No
  Sender: FDA-Public Use
  Company Number: US-DSJP-DSU-2019-118230

PATIENT

DRUGS (1)
  1. WELCHOL [Suspect]
     Active Substance: COLESEVELAM HYDROCHLORIDE
     Indication: PRODUCT USED FOR UNKNOWN INDICATION
     Dosage: 3 DF, BID
     Route: 048

REACTIONS (2)
  - Product dose omission [Not Recovered/Not Resolved]
  - No adverse event [Not Recovered/Not Resolved]
